FAERS Safety Report 6867662-0 (Version None)
Quarter: 2010Q3

REPORT INFORMATION
  Report Type: 
  Country: None (occurrence: None)
  Receive Date: 20100722
  Receipt Date: 20100208
  Transmission Date: 20110219
  Serious: No
  Sender: FDA-Public Use
  Company Number: US-BAUSCH-2010BL000737

PATIENT
  Age: 70 Year
  Sex: Female

DRUGS (3)
  1. OPCON-A [Suspect]
     Indication: EYE ALLERGY
     Route: 047
     Dates: start: 20100101, end: 20100101
  2. MULTI-VITAMINS [Concomitant]
  3. ERYTHROCIN 1% [Concomitant]
     Indication: EYELID MARGIN CRUSTING
     Route: 047

REACTIONS (2)
  - EYE PAIN [None]
  - VISION BLURRED [None]
